FAERS Safety Report 20375447 (Version 1)
Quarter: 2022Q1

REPORT INFORMATION
  Report Type: Spontaneous
  Country: US (occurrence: None)
  Receive Date: 20220124
  Receipt Date: 20220124
  Transmission Date: 20220424
  Serious: No
  Sender: FDA-Public Use
  Company Number: None

PATIENT
  Sex: Female

DRUGS (2)
  1. RIZATRIPTAN [Suspect]
     Active Substance: RIZATRIPTAN
  2. ZOMIG [Suspect]
     Active Substance: ZOLMITRIPTAN

REACTIONS (2)
  - Nausea [None]
  - Sleep terror [None]

NARRATIVE: CASE EVENT DATE: 20220124
